FAERS Safety Report 15296541 (Version 1)
Quarter: 2018Q3

REPORT INFORMATION
  Report Type: Spontaneous
  Country: ES (occurrence: ES)
  Receive Date: 20180820
  Receipt Date: 20180820
  Transmission Date: 20181010
  Serious: Yes (Other)
  Sender: FDA-Public Use
  Company Number: ES-PFIZER INC-2018328292

PATIENT
  Age: 44 Year
  Sex: Male

DRUGS (11)
  1. VALIUM [Concomitant]
     Active Substance: DIAZEPAM
     Dosage: 10 MG, 1X/DAY
     Route: 048
  2. YURELAX [Concomitant]
     Active Substance: CYCLOBENZAPRINE HYDROCHLORIDE
     Dosage: 10 MG, 1X/DAY
     Route: 048
  3. TRAMADOL. [Concomitant]
     Active Substance: TRAMADOL
     Dosage: 50 MG, 3X/DAY (EVERY 8 HOURS)
     Route: 048
  4. VERSATIS [Concomitant]
     Active Substance: LIDOCAINE
     Dosage: UNK
     Route: 061
  5. MOMETASONE [Concomitant]
     Active Substance: MOMETASONE
     Dosage: 50 MG, 2X/DAY (EVERY 12 HOURS)
     Route: 048
  6. OMEPRAZOL [Concomitant]
     Active Substance: OMEPRAZOLE
     Dosage: 20 MG, 1X/DAY
     Route: 048
  7. NEURONTIN [Suspect]
     Active Substance: GABAPENTIN
     Indication: EPILEPSY
     Dosage: 300 MG, 3X/DAY (EVERY 8 HOURS)
     Route: 048
     Dates: start: 20180328, end: 20180425
  8. DEPAKINE CRONO /00228502/ [Concomitant]
     Active Substance: VALPROIC ACID
     Dosage: 300 MG, 1X/DAY
     Route: 048
  9. EXXIV [Concomitant]
     Active Substance: ETORICOXIB
     Dosage: 60 MG, 1X/DAY
     Route: 048
  10. FELIBEN [Concomitant]
     Active Substance: BUPRENORPHINE
     Dosage: UNK (EVERY 42 HOURS)
     Route: 062
  11. SODIUM VALPROATE [Concomitant]
     Active Substance: VALPROATE SODIUM
     Dosage: 500 MG, 2X/DAY (EVERY 12 HOURS)
     Route: 048

REACTIONS (2)
  - Ejaculation disorder [Recovered/Resolved]
  - Semen viscosity abnormal [Recovered/Resolved]

NARRATIVE: CASE EVENT DATE: 20180401
